FAERS Safety Report 6899876-8 (Version None)
Quarter: 2010Q3

REPORT INFORMATION
  Report Type: 
  Country: None (occurrence: None)
  Receive Date: 20100803
  Receipt Date: 20100722
  Transmission Date: 20110219
  Serious: Yes (Hospitalization)
  Sender: FDA-Public Use
  Company Number: DK-SANOFI-AVENTIS-2010SA039868

PATIENT
  Age: 55 Year
  Sex: Male
  Weight: 128 kg

DRUGS (1)
  1. ARAVA [Suspect]
     Indication: ARTHRITIS
     Dosage: 20 MILLIGRAM(S)
     Route: 048
     Dates: start: 20100310, end: 20100501

REACTIONS (6)
  - ALOPECIA [None]
  - COLLAPSE OF LUNG [None]
  - DYSPNOEA [None]
  - ERECTILE DYSFUNCTION [None]
  - HOT FLUSH [None]
  - PNEUMONIA [None]
